FAERS Safety Report 14560826 (Version 1)
Quarter: 2018Q1

REPORT INFORMATION
  Report Type: Spontaneous
  Country: US (occurrence: US)
  Receive Date: 20180222
  Receipt Date: 20180222
  Transmission Date: 20180509
  Serious: No
  Sender: FDA-Public Use
  Company Number: US-009507513-1802USA002155

PATIENT
  Age: 32 Year
  Sex: Female
  Weight: 136.5 kg

DRUGS (2)
  1. NUVARING [Suspect]
     Active Substance: ETHINYL ESTRADIOL\ETONOGESTREL
     Dosage: 3 WEEKS INSIDE THEN 1 WEEK BREAK
     Route: 067
     Dates: start: 20171111
  2. NUVARING [Suspect]
     Active Substance: ETHINYL ESTRADIOL\ETONOGESTREL
     Indication: CONTRACEPTION
     Dosage: 3 WEEKS INSIDE THEN 1 WEEK BREAK
     Route: 067
     Dates: start: 2013

REACTIONS (5)
  - Adverse event [Unknown]
  - Menorrhagia [Unknown]
  - Headache [Unknown]
  - Vitamin D deficiency [Unknown]
  - Metrorrhagia [Unknown]

NARRATIVE: CASE EVENT DATE: 2013
